FAERS Safety Report 4489194-X (Version None)
Quarter: 2004Q4

REPORT INFORMATION
  Report Type: 
  Country: None (occurrence: None)
  Receive Date: 20041029
  Receipt Date: 20041020
  Transmission Date: 20050328
  Serious: Yes (Hospitalization)
  Sender: FDA-Public Use
  Company Number: FR-JNJFOC-20041006527

PATIENT
  Age: 80 Year
  Sex: Male

DRUGS (7)
  1. RISPERDAL [Suspect]
     Route: 049
  2. RISPERDAL [Suspect]
     Indication: DRUG USE FOR UNKNOWN INDICATION
     Route: 049
  3. SELOKEN 100 [Concomitant]
  4. AMLOR [Concomitant]
  5. VASTEN [Concomitant]
  6. LANSOPRAZOLE [Concomitant]
  7. EBIXA [Concomitant]

REACTIONS (10)
  - AKINESIA [None]
  - ARACHNOID CYST [None]
  - BRAIN SCAN ABNORMAL [None]
  - CYTOLYTIC HEPATITIS [None]
  - DYSARTHRIA [None]
  - ELECTROENCEPHALOGRAM ABNORMAL [None]
  - EXTRAPYRAMIDAL DISORDER [None]
  - HYPERTONIA [None]
  - PARKINSON'S DISEASE [None]
  - TREMOR [None]
